FAERS Safety Report 11139499 (Version 2)
Quarter: 2015Q2

REPORT INFORMATION
  Report Type: Spontaneous
  Country: ZA (occurrence: ZA)
  Receive Date: 20150527
  Receipt Date: 20150604
  Transmission Date: 20150821
  Serious: Yes (Other)
  Sender: FDA-Public Use
  Company Number: ZA-PFIZER INC-2015174175

PATIENT
  Age: 75 Year
  Sex: Female

DRUGS (7)
  1. LYRICA [Suspect]
     Active Substance: PREGABALIN
     Dosage: 25 MG, 1X/DAY
     Route: 048
     Dates: end: 20150521
  2. SEREVENT DISKUS [Concomitant]
     Active Substance: SALMETEROL XINAFOATE
     Indication: ASTHMA
     Dosage: UNK, 1X/DAY (AT NIGHT)
     Route: 055
  3. LYRICA [Suspect]
     Active Substance: PREGABALIN
     Indication: NECK PAIN
     Dosage: 25 MG, 2X/DAY (25MG IN THE MORNING, 25MG IN THE AFTERNOON)
     Route: 048
  4. BETAPHLEM [Concomitant]
     Indication: ASTHMA
     Dosage: UNK, 1X/DAY (AT NIGHT)
  5. SIMVASTATIN. [Concomitant]
     Active Substance: SIMVASTATIN
     Indication: BLOOD CHOLESTEROL INCREASED
     Dosage: 10 MG, 1X/DAY
     Route: 048
     Dates: start: 2010
  6. LYRICA [Suspect]
     Active Substance: PREGABALIN
     Indication: HEADACHE
     Dosage: 50 MG, 2X/DAY (50MG IN MORNING, 50MG IN AFTERNOON)
     Route: 048
     Dates: start: 20150310
  7. VENTEZE [Concomitant]
     Indication: ASTHMA
     Dosage: UNK, 1X/DAY(AT NIGHT)

REACTIONS (5)
  - Respiratory disorder [Recovering/Resolving]
  - Lung disorder [Recovering/Resolving]
  - Cough [Recovering/Resolving]
  - Gait disturbance [Not Recovered/Not Resolved]
  - Muscle atrophy [Not Recovered/Not Resolved]

NARRATIVE: CASE EVENT DATE: 201503
